FAERS Safety Report 6825162-8 (Version None)
Quarter: 2010Q3

REPORT INFORMATION
  Report Type: 
  Country: None (occurrence: None)
  Receive Date: 20100708
  Receipt Date: 20061215
  Transmission Date: 20110219
  Serious: No
  Sender: FDA-Public Use
  Company Number: US-PFIZER INC-2006155918

PATIENT
  Sex: Female
  Weight: 71.67 kg

DRUGS (3)
  1. CHANTIX [Suspect]
     Dates: start: 20060801, end: 20061210
  2. HUMALOG [Concomitant]
  3. VALSARTAN [Concomitant]

REACTIONS (5)
  - BLOOD GLUCOSE INCREASED [None]
  - GLYCOSYLATED HAEMOGLOBIN INCREASED [None]
  - NAUSEA [None]
  - VOMITING [None]
  - WEIGHT INCREASED [None]
